FAERS Safety Report 4709460-X (Version None)
Quarter: 2005Q3

REPORT INFORMATION
  Report Type: 
  Country: None (occurrence: None)
  Receive Date: 20050708
  Receipt Date: 20050629
  Transmission Date: 20060218
  Serious: Yes (Death)
  Sender: FDA-Public Use
  Company Number: 58339

PATIENT
  Sex: Male

DRUGS (11)
  1. DIGOXIN [Suspect]
     Dosage: 250MG PER DAY
     Route: 048
  2. FUROSEMIDE [Suspect]
     Dosage: 80MG PER DAY
     Route: 048
  3. ALLOPURINOL [Suspect]
     Dosage: 200MG PER DAY
     Route: 048
  4. PANTOPRAZOLE [Suspect]
     Dosage: 1U PER DAY
     Route: 048
  5. TIOTROPIUM BROMIDE [Suspect]
     Route: 065
  6. COVERSYL [Suspect]
     Dosage: 4MG PER DAY
     Route: 048
  7. WARFARIN [Concomitant]
     Route: 048
  8. BECLOMETHASONE DIPROPIONATE [Concomitant]
     Route: 065
  9. SALBUTAMOL [Concomitant]
     Route: 065
  10. SIMVASTATIN [Concomitant]
     Route: 048
  11. ACETAMINOPHEN [Concomitant]
     Route: 048

REACTIONS (1)
  - AORTIC DISSECTION [None]
